FAERS Safety Report 24913378 (Version 1)
Quarter: 2025Q1

REPORT INFORMATION
  Report Type: Spontaneous
  Country: CN (occurrence: CN)
  Receive Date: 20250201
  Receipt Date: 20250201
  Transmission Date: 20250409
  Serious: Yes (Other)
  Sender: BAXTER
  Company Number: None

PATIENT
  Age: 20 Year
  Sex: Male
  Weight: 60 kg

DRUGS (1)
  1. MANNITOL [Suspect]
     Active Substance: MANNITOL
     Indication: Tendon injury
     Route: 041
     Dates: start: 20241222, end: 20241222

REACTIONS (2)
  - Rash erythematous [Recovering/Resolving]
  - Pruritus [Recovering/Resolving]

NARRATIVE: CASE EVENT DATE: 20241222
